FAERS Safety Report 5460827-4 (Version None)
Quarter: 2007Q3

REPORT INFORMATION
  Report Type: 
  Country: None (occurrence: None)
  Receive Date: 20070919
  Receipt Date: 20070914
  Transmission Date: 20080115
  Serious: Yes (Hospitalization, Other)
  Sender: FDA-Public Use
  Company Number: US-BOEHRINGER INGELHEIM PHARMACEUTICALS, INC.-2007-BP-20871BP

PATIENT
  Age: 85 Year
  Sex: Male

DRUGS (3)
  1. SPIRIVA [Suspect]
     Indication: CHRONIC OBSTRUCTIVE PULMONARY DISEASE
     Route: 055
  2. AVODART [Concomitant]
     Dates: end: 20070913
  3. FLOMAX [Concomitant]
     Dates: start: 20070913

REACTIONS (9)
  - AORTIC ANEURYSM [None]
  - ATRIAL FIBRILLATION [None]
  - CARDIAC FAILURE CONGESTIVE [None]
  - EXPOSURE TO CHEMICAL POLLUTION [None]
  - INTERSTITIAL LUNG DISEASE [None]
  - LUNG NEOPLASM [None]
  - NEOPLASM MALIGNANT [None]
  - PROSTATE EXAMINATION ABNORMAL [None]
  - SCAR [None]
